FAERS Safety Report 5333872-7 (Version None)
Quarter: 2007Q2

REPORT INFORMATION
  Report Type: 
  Country: None (occurrence: None)
  Receive Date: 20070524
  Receipt Date: 20070514
  Transmission Date: 20071010
  Serious: Yes (Death)
  Sender: FDA-Public Use
  Company Number: US-SHR-US-2007-002078

PATIENT
  Sex: Male

DRUGS (5)
  1. MAGNEVIST [Suspect]
  2. OMNISCAN [Suspect]
  3. OPTIMARK [Suspect]
  4. PROHANCE [Suspect]
  5. MULTIHANCE [Suspect]

REACTIONS (1)
  - DEATH [None]
